FAERS Safety Report 6455975-6 (Version None)
Quarter: 2009Q4

REPORT INFORMATION
  Report Type: 
  Country: None (occurrence: None)
  Receive Date: 20091125
  Receipt Date: 20091116
  Transmission Date: 20100525
  Serious: Yes (Life-Threatening, Hospitalization)
  Sender: FDA-Public Use
  Company Number: FR-PFIZER INC-2009297858

PATIENT
  Sex: Male

DRUGS (3)
  1. AMLOR [Suspect]
     Dosage: 5 MG, 1X/DAY
     Route: 064
     Dates: start: 20090326, end: 20091008
  2. KERLONE [Suspect]
     Dosage: 20 MG, 1X/DAY
     Route: 064
     Dates: start: 20090326, end: 20091008
  3. FLECAINIDE ACETATE [Suspect]
     Dosage: 100 MG, 1X/DAY
     Route: 064
     Dates: start: 20090326, end: 20091008

REACTIONS (3)
  - CAESAREAN SECTION [None]
  - DRUG EXPOSURE DURING PREGNANCY [None]
  - FOETAL GROWTH RETARDATION [None]
